FAERS Safety Report 9592028 (Version 7)
Quarter: 2015Q2

REPORT INFORMATION
  Report Type: Report from Study
  Country: US (occurrence: US)
  Receive Date: 20131004
  Receipt Date: 20150505
  Transmission Date: 20150821
  Serious: Yes (Hospitalization)
  Sender: FDA-Public Use
  Company Number: US-BIOGENIDEC-2013BI094662

PATIENT
  Age: 42 Year
  Sex: Female
  Weight: 55 kg

DRUGS (15)
  1. CITALOPRAM [Concomitant]
     Active Substance: CITALOPRAM HYDROBROMIDE
     Route: 048
  2. VITAMIN D [Concomitant]
     Active Substance: CHOLECALCIFEROL
  3. DIAZEPAM. [Concomitant]
     Active Substance: DIAZEPAM
  4. PHENYTOIN. [Concomitant]
     Active Substance: PHENYTOIN
  5. TYSABRI [Suspect]
     Active Substance: NATALIZUMAB
     Indication: MULTIPLE SCLEROSIS
     Route: 042
     Dates: start: 20070723, end: 20130909
  6. CITALOPRAM [Concomitant]
     Active Substance: CITALOPRAM HYDROBROMIDE
     Route: 048
  7. VITAMIN B12 [Concomitant]
     Active Substance: CYANOCOBALAMIN
     Route: 048
  8. CRANBERRY. [Concomitant]
     Active Substance: CRANBERRY
  9. BACLOFEN. [Concomitant]
     Active Substance: BACLOFEN
  10. MULTIVITAMIN [Concomitant]
     Active Substance: VITAMINS
     Route: 048
  11. DOCUSATE [Concomitant]
     Active Substance: DOCUSATE
     Route: 048
  12. DONEPEZIL [Concomitant]
     Active Substance: DONEPEZIL
     Route: 048
  13. SENNA [Concomitant]
     Active Substance: SENNA LEAF\SENNOSIDES\SENNOSIDES A AND B
     Route: 048
  14. TOLTERODINE [Concomitant]
     Active Substance: TOLTERODINE
     Route: 048
  15. VESICARE [Concomitant]
     Active Substance: SOLIFENACIN SUCCINATE
     Indication: NEUROGENIC BLADDER
     Dates: start: 20130605

REACTIONS (2)
  - Progressive multifocal leukoencephalopathy [Not Recovered/Not Resolved]
  - Immune reconstitution inflammatory syndrome [Unknown]

NARRATIVE: CASE EVENT DATE: 201308
